FAERS Safety Report 14245693 (Version 2)
Quarter: 2017Q4

REPORT INFORMATION
  Report Type: Spontaneous
  Country: US (occurrence: US)
  Receive Date: 20171204
  Receipt Date: 20171226
  Transmission Date: 20180321
  Serious: No
  Sender: FDA-Public Use
  Company Number: US-ASTRAZENECA-2017SF16851

PATIENT
  Age: 59 Year
  Sex: Female

DRUGS (2)
  1. VICTOZA [Concomitant]
     Active Substance: LIRAGLUTIDE
     Route: 058
  2. BYDUREON [Suspect]
     Active Substance: EXENATIDE
     Indication: TYPE 2 DIABETES MELLITUS
     Route: 058

REACTIONS (8)
  - Pain [Recovering/Resolving]
  - Pruritus [Unknown]
  - Nausea [Unknown]
  - Abdominal distension [Unknown]
  - Rash [Recovering/Resolving]
  - Injection site mass [Recovering/Resolving]
  - Drug hypersensitivity [Unknown]
  - Injection site erythema [Unknown]

NARRATIVE: CASE EVENT DATE: 201710
